FAERS Safety Report 7305104-1 (Version None)
Quarter: 2011Q1

REPORT INFORMATION
  Report Type: 
  Country: None (occurrence: None)
  Receive Date: 20110222
  Receipt Date: 20110217
  Transmission Date: 20110831
  Serious: Yes (Other)
  Sender: FDA-Public Use
  Company Number: US-AMGEN-US358450

PATIENT
  Age: 9 Year
  Sex: Female
  Weight: 28.8 kg

DRUGS (2)
  1. NPLATE [Suspect]
     Dates: start: 20080917
  2. NPLATE [Suspect]
     Indication: IDIOPATHIC THROMBOCYTOPENIC PURPURA
     Dosage: UNK UNK, QWK
     Dates: start: 20080917

REACTIONS (10)
  - DARK CIRCLES UNDER EYES [None]
  - HAEMOGLOBIN DECREASED [None]
  - PLATELET COUNT DECREASED [None]
  - PRURITUS [None]
  - RASH ERYTHEMATOUS [None]
  - HEADACHE [None]
  - FATIGUE [None]
  - MUSCULOSKELETAL PAIN [None]
  - PAIN IN EXTREMITY [None]
  - DEPRESSION [None]
